FAERS Safety Report 9157939 (Version 14)
Quarter: 2014Q3

REPORT INFORMATION
  Report Type: Report from Study
  Country: CA (occurrence: CA)
  Receive Date: 20130312
  Receipt Date: 20140829
  Transmission Date: 20150326
  Serious: Yes (Other)
  Sender: FDA-Public Use
  Company Number: CA-GLAXOSMITHKLINE-A0970256A

PATIENT
  Age: 41 Year
  Sex: Female
  Weight: 109 kg

DRUGS (16)
  1. NEXIUM [Concomitant]
     Active Substance: ESOMEPRAZOLE MAGNESIUM
     Dosage: 40MG PER DAY
  2. ELAVIL [Concomitant]
     Active Substance: AMITRIPTYLINE HYDROCHLORIDE
     Dosage: 50MG FOUR TIMES PER DAY
  3. BENADRYL [Concomitant]
     Active Substance: DIPHENHYDRAMINE HYDROCHLORIDE
  4. PREDNISONE. [Concomitant]
     Active Substance: PREDNISONE
     Indication: SYSTEMIC LUPUS ERYTHEMATOSUS
     Dosage: 5MG PER DAY
     Route: 048
  5. ADALAT CC [Concomitant]
     Active Substance: NIFEDIPINE
     Indication: HYPERTENSION
     Dosage: 30MG PER DAY
     Route: 048
  6. VITAMIN D [Concomitant]
     Active Substance: CHOLECALCIFEROL
     Indication: SYSTEMIC LUPUS ERYTHEMATOSUS
     Dosage: 1000IU PER DAY
  7. ACTONEL [Concomitant]
     Active Substance: RISEDRONATE SODIUM
  8. SYNTHROID [Concomitant]
     Active Substance: LEVOTHYROXINE SODIUM
  9. METHOTREXATE [Suspect]
     Active Substance: METHOTREXATE
     Indication: SYSTEMIC LUPUS ERYTHEMATOSUS
     Dosage: 20MG WEEKLY
     Route: 048
  10. ROSUVASTATIN [Suspect]
     Active Substance: ROSUVASTATIN
     Indication: BLOOD CHOLESTEROL INCREASED
     Route: 065
  11. CALCIUM [Concomitant]
     Active Substance: CALCIUM
     Indication: SYSTEMIC LUPUS ERYTHEMATOSUS
     Dosage: 500MG THREE TIMES PER DAY
  12. MELOXICAM. [Concomitant]
     Active Substance: MELOXICAM
  13. BENLYSTA [Suspect]
     Active Substance: BELIMUMAB
     Indication: SYSTEMIC LUPUS ERYTHEMATOSUS
     Dosage: 1000MG SEE DOSAGE TEXT
     Route: 042
     Dates: start: 20120302
  14. NORVASC [Concomitant]
     Active Substance: AMLODIPINE BESYLATE
     Dosage: 10MG PER DAY
  15. FOLIC ACID. [Concomitant]
     Active Substance: FOLIC ACID
     Indication: SYSTEMIC LUPUS ERYTHEMATOSUS
     Dosage: 1TAB PER DAY
     Route: 048
  16. TYLENOL [Concomitant]
     Active Substance: ACETAMINOPHEN

REACTIONS (39)
  - Pyrexia [Unknown]
  - Lower respiratory tract infection [Recovered/Resolved]
  - Peripheral swelling [Unknown]
  - Acrochordon [Not Recovered/Not Resolved]
  - Aphasia [Unknown]
  - Diarrhoea [Recovered/Resolved]
  - Sinusitis [Recovered/Resolved]
  - Productive cough [Unknown]
  - Pain [Unknown]
  - Sinusitis [Recovered/Resolved]
  - Pain in extremity [Unknown]
  - Muscle spasms [Recovered/Resolved]
  - Arthropathy [Unknown]
  - Initial insomnia [Not Recovered/Not Resolved]
  - Flushing [Recovered/Resolved]
  - Epistaxis [Unknown]
  - Fatigue [Not Recovered/Not Resolved]
  - Tremor [Recovering/Resolving]
  - Oral herpes [Unknown]
  - Uterine prolapse [Unknown]
  - Insomnia [Not Recovered/Not Resolved]
  - Wound [Unknown]
  - Blood cholesterol increased [Unknown]
  - Tremor [Recovering/Resolving]
  - Vomiting [Recovered/Resolved]
  - Nausea [Recovered/Resolved]
  - Cyst [Recovered/Resolved]
  - Smear cervix abnormal [Unknown]
  - Erythema [Recovered/Resolved]
  - Urticaria [Recovered/Resolved]
  - Skin discolouration [Recovered/Resolved]
  - Contusion [Recovered/Resolved]
  - Melanocytic naevus [Not Recovered/Not Resolved]
  - Gastroenteritis [Recovered/Resolved]
  - Basal cell carcinoma [Unknown]
  - Sinus congestion [Recovered/Resolved]
  - Malaise [Unknown]
  - Ill-defined disorder [Unknown]
  - Skin lesion [Unknown]

NARRATIVE: CASE EVENT DATE: 20120303
